FAERS Safety Report 9293933 (Version 1)
Quarter: 2013Q1

REPORT INFORMATION
  Report Type: Spontaneous
  Country: US (occurrence: None)
  Receive Date: 20121214
  Receipt Date: 20121214
  Transmission Date: 20140127
  Serious: Yes (Hospitalization)
  Sender: FDA-Public Use
  Company Number: 1207USA010183

PATIENT
  Age: 52 Year
  Sex: Male

DRUGS (5)
  1. ENALAPRIL MALEATE (ENALAPRIL MALEATE) [Suspect]
     Route: 048
  2. JANUVIA (SITAGLIPTIN PHOSPHATE) [Suspect]
     Route: 048
  3. METFORMIN (METFORMIN) [Concomitant]
  4. APROVEL (APROVEL) [Concomitant]
  5. QVAR (BECLOMETHASONW DIPROPIONATE) [Concomitant]

REACTIONS (1)
  - Leukocytoclastic vasculitis [None]
